FAERS Safety Report 6106256-1 (Version None)
Quarter: 2009Q1

REPORT INFORMATION
  Report Type: 
  Country: None (occurrence: None)
  Receive Date: 20090304
  Receipt Date: 20090220
  Transmission Date: 20090719
  Serious: Yes (Death)
  Sender: FDA-Public Use
  Company Number: GXKR2009US02263

PATIENT
  Age: 46 Year
  Sex: Male

DRUGS (4)
  1. DOXEPIN HCL [Suspect]
  2. WELLBUTRIN [Suspect]
  3. METHAMPHETAMINE HYDROCHLORIDE [Suspect]
  4. ZYPREXA [Suspect]

REACTIONS (3)
  - COMPLETED SUICIDE [None]
  - DRUG TOXICITY [None]
  - UNRESPONSIVE TO STIMULI [None]
